FAERS Safety Report 4336562-2 (Version None)
Quarter: 2004Q2

REPORT INFORMATION
  Report Type: 
  Country: None (occurrence: None)
  Receive Date: 20040409
  Receipt Date: 20040409
  Transmission Date: 20050107
  Serious: Yes (Life-Threatening, Hospitalization)
  Sender: FDA-Public Use
  Company Number: None

PATIENT
  Sex: Male

DRUGS (9)
  1. TEQUIN [Suspect]
     Indication: PNEUMONIA
     Dosage: 400MG QDAY ORAL
     Route: 048
     Dates: start: 20040302, end: 20040304
  2. MICRONASE [Concomitant]
  3. DETROL [Concomitant]
  4. PRILOSEC [Concomitant]
  5. ALTACE [Concomitant]
  6. AMIODARONE HCL [Concomitant]
  7. METOPROLOL [Concomitant]
  8. SYNTHROID [Concomitant]
  9. GABAPENTIN [Concomitant]

REACTIONS (3)
  - BLOOD GLUCOSE DECREASED [None]
  - BRADYCARDIA [None]
  - COMA [None]
